FAERS Safety Report 13916646 (Version 1)
Quarter: 2017Q3

REPORT INFORMATION
  Report Type: Spontaneous
  Country: US (occurrence: US)
  Receive Date: 20170829
  Receipt Date: 20170829
  Transmission Date: 20171127
  Serious: Yes (Other)
  Sender: FDA-Public Use
  Company Number: US-SEBELA IRELAND LIMITED-2017SEB00360

PATIENT
  Age: 57 Year
  Sex: Female

DRUGS (1)
  1. IMURAN [Suspect]
     Active Substance: AZATHIOPRINE
     Indication: RHEUMATOID ARTHRITIS

REACTIONS (10)
  - Drug hypersensitivity [Unknown]
  - Glycosylated haemoglobin increased [Unknown]
  - Osteoporosis [Unknown]
  - Drug ineffective [Unknown]
  - Fall [Unknown]
  - Hip fracture [Unknown]
  - Deformity [Not Recovered/Not Resolved]
  - Rheumatoid arthritis [Unknown]
  - Blood glucose increased [Recovered/Resolved]
  - Vomiting [Unknown]

NARRATIVE: CASE EVENT DATE: 2012
